FAERS Safety Report 7148384-8 (Version None)
Quarter: 2010Q4

REPORT INFORMATION
  Report Type: 
  Country: None (occurrence: None)
  Receive Date: 20101209
  Receipt Date: 20101201
  Transmission Date: 20110411
  Serious: Yes (Hospitalization)
  Sender: FDA-Public Use
  Company Number: CA-AMGEN-CANSP2010007141

PATIENT

DRUGS (5)
  1. ENBREL [Suspect]
     Dosage: 50 MG, QWK
     Route: 058
     Dates: start: 20101014
  2. METHOTREXATE [Concomitant]
  3. COZARIL [Concomitant]
  4. SYNTHROID [Concomitant]
  5. HYDROTHIAZIDE [Concomitant]

REACTIONS (3)
  - CYSTITIS [None]
  - DYSPNOEA [None]
  - PNEUMONIA [None]
